FAERS Safety Report 8189209-1 (Version None)
Quarter: 2012Q1

REPORT INFORMATION
  Report Type: 
  Country: None (occurrence: None)
  Receive Date: 20120307
  Receipt Date: 20120228
  Transmission Date: 20120608
  Serious: Yes (Other)
  Sender: FDA-Public Use
  Company Number: US-BAYER-2011-121665

PATIENT
  Age: 21 Year
  Sex: Female

DRUGS (1)
  1. MIRENA [Suspect]
     Indication: CONTRACEPTION
     Dosage: 20 MCG/24HR, CONT
     Dates: start: 20110318, end: 20111215

REACTIONS (4)
  - DEVICE DISLOCATION [None]
  - ABDOMINAL PAIN [None]
  - PELVIC DISCOMFORT [None]
  - PELVIC PAIN [None]
